FAERS Safety Report 8179535-4 (Version None)
Quarter: 2012Q1

REPORT INFORMATION
  Report Type: 
  Country: None (occurrence: None)
  Receive Date: 20120229
  Receipt Date: 20120229
  Transmission Date: 20120608
  Serious: Yes (Life-Threatening, Hospitalization)
  Sender: FDA-Public Use
  Company Number: None

PATIENT
  Sex: Female
  Weight: 74.8435 kg

DRUGS (1)
  1. METFORMIN HYDROCHLORIDE [Suspect]
     Indication: DIABETES MELLITUS
     Dosage: 1,000 MG AM + PM BY MOUTH
     Route: 048

REACTIONS (4)
  - LACTIC ACIDOSIS [None]
  - HEART RATE DECREASED [None]
  - OXYGEN SATURATION DECREASED [None]
  - BLOOD PRESSURE SYSTOLIC DECREASED [None]
